FAERS Safety Report 15309476 (Version 2)
Quarter: 2018Q4

REPORT INFORMATION
  Report Type: Spontaneous
  Country: FR (occurrence: FR)
  Receive Date: 20180823
  Receipt Date: 20180919
  Transmission Date: 20190204
  Serious: Yes (Hospitalization)
  Sender: FDA-Public Use
  Company Number: FR-TEVA-2018-FR-946358

PATIENT
  Age: 49 Year
  Sex: Male

DRUGS (11)
  1. OFLOCET [Suspect]
     Active Substance: OFLOXACIN
     Indication: OTITIS EXTERNA
     Dosage: 4.5 MILLIGRAM DAILY;
     Route: 001
     Dates: start: 20180708, end: 20180710
  2. LAMISIL [Suspect]
     Active Substance: TERBINAFINE HYDROCHLORIDE
     Indication: INTERTRIGO
     Dosage: 2 DOSAGE FORMS DAILY; 1 APPLICATION TWICE A DAY
     Route: 003
     Dates: start: 20180706, end: 20180710
  3. TELMISARTAN. [Concomitant]
     Active Substance: TELMISARTAN
     Indication: PRODUCT USED FOR UNKNOWN INDICATION
     Dosage: 40 MILLIGRAM DAILY; 40 MG ON MATI
     Route: 048
  4. LAMISIL [Suspect]
     Active Substance: TERBINAFINE HYDROCHLORIDE
     Indication: INTERTRIGO
     Dosage: 250 MILLIGRAM DAILY;
     Route: 048
     Dates: start: 20180706, end: 20180710
  5. DESLORATADINE. [Suspect]
     Active Substance: DESLORATADINE
     Indication: PRODUCT USED FOR UNKNOWN INDICATION
     Dosage: 5 MILLIGRAM DAILY;
     Route: 048
     Dates: start: 20180706, end: 20180710
  6. CYTEAL, FOAMING SOLUTION [Suspect]
     Active Substance: CHLORHEXIDINE GLUCONATE\CHLOROCRESOL\HEXAMIDINE DIISETHIONATE
     Indication: INTERTRIGO
     Dosage: NOT INFORMED?FOAMING SOLUTION
     Route: 003
     Dates: start: 20180628, end: 20180710
  7. PARACETAMOL [Concomitant]
     Active Substance: ACETAMINOPHEN
     Indication: PRODUCT USED FOR UNKNOWN INDICATION
     Dosage: 3 GRAM DAILY;
     Route: 048
  8. NABUCOX 1 G, DISPERSIBLE TABLET [Suspect]
     Active Substance: NABUMETONE
     Indication: INTERTRIGO
     Dosage: 1 GRAM DAILY;
     Route: 048
     Dates: start: 20180628, end: 20180710
  9. PYOSTACINE [Suspect]
     Active Substance: PRISTINAMYCIN
     Indication: ERYSIPELAS
     Dosage: 3 GRAM DAILY;
     Route: 048
     Dates: start: 20180702, end: 20180710
  10. IBUPROFEN. [Suspect]
     Active Substance: IBUPROFEN
     Indication: INTERTRIGO
     Dosage: 3 DOSAGE FORMS DAILY; 1 APPLICATION 3 TIMES A DAY
     Route: 003
     Dates: start: 20180628, end: 20180710
  11. FENOFIBRATE. [Concomitant]
     Active Substance: FENOFIBRATE
     Indication: PRODUCT USED FOR UNKNOWN INDICATION
     Dosage: 160 MILLIGRAM DAILY; 160 MG IN THE EVENING
     Route: 048

REACTIONS (1)
  - Rash maculo-papular [Not Recovered/Not Resolved]

NARRATIVE: CASE EVENT DATE: 20180710
